FAERS Safety Report 6216281-8 (Version None)
Quarter: 2009Q2

REPORT INFORMATION
  Report Type: 
  Country: None (occurrence: None)
  Receive Date: 20090605
  Receipt Date: 20090529
  Transmission Date: 20091009
  Serious: Yes (Hospitalization)
  Sender: FDA-Public Use
  Company Number: B0577430A

PATIENT
  Sex: Female

DRUGS (7)
  1. AVANDIA [Suspect]
     Indication: DIABETES MELLITUS
     Dosage: 8MG PER DAY
     Route: 048
     Dates: start: 20080204
  2. COZAAR [Concomitant]
  3. ADARTREL [Concomitant]
  4. AMLODIPINE [Concomitant]
  5. MINIDIAB [Concomitant]
  6. FURIX [Concomitant]
  7. TROMBYL [Concomitant]

REACTIONS (9)
  - ACCIDENTAL OVERDOSE [None]
  - ANAEMIA [None]
  - CARDIAC FAILURE [None]
  - DYSPNOEA [None]
  - MITRAL VALVE INCOMPETENCE [None]
  - MYOCARDIAL INFARCTION [None]
  - PITTING OEDEMA [None]
  - PULMONARY HYPERTENSION [None]
  - SINUS TACHYCARDIA [None]
